FAERS Safety Report 15530509 (Version 1)
Quarter: 2018Q4

REPORT INFORMATION
  Report Type: Report from Study
  Country: AU (occurrence: AU)
  Receive Date: 20181018
  Receipt Date: 20181018
  Transmission Date: 20190205
  Serious: Yes (Hospitalization)
  Sender: FDA-Public Use
  Company Number: AU-TOLMAR, INC.-2018AU010183

PATIENT

DRUGS (1)
  1. ELIGARD [Suspect]
     Active Substance: LEUPROLIDE ACETATE
     Indication: PROSTATE CANCER
     Dosage: 45 MG, 6 MONTHLY
     Route: 058
     Dates: start: 20180409

REACTIONS (5)
  - Lacrimation increased [Unknown]
  - Condition aggravated [Unknown]
  - Entropion [Unknown]
  - Restless legs syndrome [Unknown]
  - Eye swelling [Unknown]

NARRATIVE: CASE EVENT DATE: 201808
